FAERS Safety Report 6398498-5 (Version None)
Quarter: 2009Q4

REPORT INFORMATION
  Report Type: 
  Country: None (occurrence: None)
  Receive Date: 20091013
  Receipt Date: 20091012
  Transmission Date: 20100525
  Serious: Yes (Death)
  Sender: FDA-Public Use
  Company Number: D0063145A

PATIENT
  Age: 62 Year
  Sex: Male

DRUGS (2)
  1. LEUKERAN [Suspect]
     Route: 048
  2. URBASON [Concomitant]
     Dosage: 40MG PER DAY
     Route: 065

REACTIONS (5)
  - GAMMA-GLUTAMYLTRANSFERASE INCREASED [None]
  - HEPATIC NECROSIS [None]
  - HEPATOTOXICITY [None]
  - PROTHROMBIN TIME PROLONGED [None]
  - YELLOW SKIN [None]
